FAERS Safety Report 23664034 (Version 1)
Quarter: 2024Q1

REPORT INFORMATION
  Report Type: Report from Study
  Country: US (occurrence: US)
  Receive Date: 20240322
  Receipt Date: 20240322
  Transmission Date: 20240410
  Serious: Yes (Hospitalization, Other)
  Sender: FDA-Public Use
  Company Number: US-ABBVIE-5683440

PATIENT
  Age: 60 Year
  Sex: Male
  Weight: 123 kg

DRUGS (3)
  1. HUMIRA [Suspect]
     Active Substance: ADALIMUMAB
     Indication: Colitis ulcerative
     Dosage: CITRATE FREE. FORM STRENGTH: 40 MG.
     Route: 058
     Dates: start: 20230901, end: 20240130
  2. HUMIRA [Suspect]
     Active Substance: ADALIMUMAB
     Dosage: CITRATE FREE, FORM STRENGTH: 40 MG
     Route: 058
     Dates: start: 202402, end: 202402
  3. LISINOPRIL [Concomitant]
     Active Substance: LISINOPRIL
     Indication: Hypertension

REACTIONS (9)
  - Asthenia [Recovered/Resolved]
  - Colitis ulcerative [Recovering/Resolving]
  - Thrombosis [Recovered/Resolved]
  - Haemoglobin decreased [Recovering/Resolving]
  - Haemorrhage [Recovering/Resolving]
  - Gait disturbance [Recovered/Resolved]
  - Drug ineffective [Not Recovered/Not Resolved]
  - Unevaluable event [Recovered/Resolved]
  - Clostridium difficile infection [Unknown]

NARRATIVE: CASE EVENT DATE: 20240201
